FAERS Safety Report 7581959-0 (Version None)
Quarter: 2011Q2

REPORT INFORMATION
  Report Type: 
  Country: None (occurrence: None)
  Receive Date: 20110630
  Receipt Date: 20110622
  Transmission Date: 20111010
  Serious: Yes (Hospitalization)
  Sender: FDA-Public Use
  Company Number: US-BIOGENIDEC-2010BI028855

PATIENT
  Age: 50 Year
  Sex: Female
  Weight: 74 kg

DRUGS (9)
  1. AMITRIPTYLINE [Concomitant]
     Indication: NEURALGIA
  2. PROVIGIL [Concomitant]
     Indication: FATIGUE
  3. AMANTADINE HCL [Concomitant]
     Indication: FATIGUE
  4. TEGRETOL [Concomitant]
     Indication: MUSCLE SPASMS
  5. LORAZEPAM [Concomitant]
     Indication: ANXIETY
  6. EFFEXOR [Concomitant]
     Indication: DEPRESSION
  7. ALHAGAN 1% DROPS [Concomitant]
     Indication: VISUAL ACUITY REDUCED
  8. ZANAFLEX [Concomitant]
     Indication: MUSCLE SPASMS
  9. TYSABRI [Suspect]
     Indication: MULTIPLE SCLEROSIS
     Route: 042
     Dates: start: 20090616

REACTIONS (5)
  - OESOPHAGEAL SPASM [None]
  - LIBIDO DECREASED [None]
  - MEMORY IMPAIRMENT [None]
  - MOOD SWINGS [None]
  - CONFUSIONAL STATE [None]
